FAERS Safety Report 9247529 (Version 1)
Quarter: 2013Q2

REPORT INFORMATION
  Report Type: Spontaneous
  Country: GB (occurrence: GB)
  Receive Date: 20130423
  Receipt Date: 20130423
  Transmission Date: 20140414
  Serious: Yes (Other)
  Sender: FDA-Public Use
  Company Number: PHFR2013GB002276

PATIENT
  Age: 15 Year
  Sex: Male

DRUGS (3)
  1. METHYLPHENIDATE [Suspect]
     Dosage: 72 MG, UNK
  2. METHYLPHENIDATE [Suspect]
     Dosage: 5 MG
  3. CONCERTA XL [Suspect]
     Dosage: 81 MG
     Route: 048

REACTIONS (2)
  - Raynaud^s phenomenon [Unknown]
  - Peripheral coldness [Unknown]
